FAERS Safety Report 4815532-1 (Version None)
Quarter: 2005Q4

REPORT INFORMATION
  Report Type: 
  Country: None (occurrence: None)
  Receive Date: 20051031
  Receipt Date: 20050615
  Transmission Date: 20060501
  Serious: Yes (Hospitalization)
  Sender: FDA-Public Use
  Company Number: GB-NOVOPROD-244866

PATIENT
  Age: 72 Year
  Sex: Male
  Weight: 92 kg

DRUGS (8)
  1. LEVEMIR [Suspect]
     Indication: DIABETES MELLITUS
     Dosage: 26 IU, QD
     Route: 058
     Dates: start: 20050406
  2. NOVORAPID [Suspect]
     Indication: DIABETES MELLITUS
     Dosage: 26 IU, UNK
     Route: 058
     Dates: start: 20050406
  3. DIGOXIN [Concomitant]
     Dates: start: 20000401
  4. FRUSEMIDE [Concomitant]
     Dates: start: 20000401
  5. RAMIPRIL [Concomitant]
     Dates: start: 20000401
  6. AMIODARONE HCL [Concomitant]
     Dates: start: 20000401
  7. WARFARIN [Concomitant]
     Dates: start: 20000501
  8. PRAVASTATIN [Concomitant]
     Dates: start: 20001201

REACTIONS (2)
  - ACUTE MYOCARDIAL INFARCTION [None]
  - ARRHYTHMIA [None]
